FAERS Safety Report 20145646 (Version 1)
Quarter: 2021Q4

REPORT INFORMATION
  Report Type: Spontaneous
  Country: AU (occurrence: AU)
  Receive Date: 20211203
  Receipt Date: 20211203
  Transmission Date: 20220303
  Serious: Yes (Hospitalization, Other)
  Sender: FDA-Public Use
  Company Number: AU-AMGEN-AUSSP2021188883

PATIENT
  Sex: Female

DRUGS (4)
  1. PROLIA [Suspect]
     Active Substance: DENOSUMAB
     Indication: Osteoporosis
     Dosage: UNK
     Route: 065
     Dates: start: 20210511
  2. CALCIUM [Concomitant]
     Active Substance: CALCIUM
     Dosage: UNK UNK, QD
  3. GLICLAZIDE [Concomitant]
     Active Substance: GLICLAZIDE
     Dosage: 60 MILLIGRAM, QD
  4. VITAMIN D3 [Concomitant]
     Active Substance: CHOLECALCIFEROL
     Dosage: UNK UNK, QD

REACTIONS (16)
  - Type 2 diabetes mellitus [Unknown]
  - Atrial fibrillation [Unknown]
  - Rhinalgia [Unknown]
  - Renal pain [Unknown]
  - Nodule [Recovered/Resolved]
  - Stress [Unknown]
  - Quality of life decreased [Unknown]
  - Post thrombotic syndrome [Unknown]
  - Malaise [Unknown]
  - Osteoarthritis [Unknown]
  - Pain [Unknown]
  - Pruritus [Unknown]
  - Insomnia [Unknown]
  - Arthralgia [Unknown]
  - Alopecia [Unknown]
  - Constipation [Unknown]

NARRATIVE: CASE EVENT DATE: 20210101
